FAERS Safety Report 20085183 (Version 1)
Quarter: 2021Q4

REPORT INFORMATION
  Report Type: Spontaneous
  Country: ES (occurrence: ES)
  Receive Date: 20211118
  Receipt Date: 20211118
  Transmission Date: 20220303
  Serious: Yes (Death, Other)
  Sender: FDA-Public Use
  Company Number: ES-STRIDES ARCOLAB LIMITED-2021SP029859

PATIENT
  Age: 42 Year
  Sex: Female

DRUGS (4)
  1. MYCOPHENOLATE MOFETIL [Suspect]
     Active Substance: MYCOPHENOLATE MOFETIL
     Indication: Bone marrow conditioning regimen
     Dosage: UNK, BID, DESENSITISATION TREATMENT
     Route: 065
  2. RITUXIMAB [Suspect]
     Active Substance: RITUXIMAB
     Indication: Bone marrow conditioning regimen
     Dosage: 375 MILLIGRAM/SQ. METER, SCHEDULED FOR FOUR DOSES ADMINISTERED WEEKLY STARTING FROM DAY -35
     Route: 065
  3. BUSULFAN [Suspect]
     Active Substance: BUSULFAN
     Indication: Bone marrow conditioning regimen
     Dosage: 3.2 MILLIGRAM/KILOGRAM, ADMINISTERED EITHER ONE OR TWO DAYS ON DAYS -3 AND -2
     Route: 042
  4. THYMOGLOBULIN [Concomitant]
     Active Substance: LAPINE T-LYMPHOCYTE IMMUNE GLOBULIN
     Indication: Bone marrow conditioning regimen
     Dosage: 2 MILLIGRAM/KILOGRAM, PER DAY, ADMINISTERED ON DAYS -6, -5 AND -4.
     Route: 065

REACTIONS (3)
  - Thrombotic microangiopathy [Fatal]
  - Bacteraemia [Unknown]
  - Off label use [Unknown]
